FAERS Safety Report 14815238 (Version 1)
Quarter: 2018Q2

REPORT INFORMATION
  Report Type: Report from Study
  Country: US (occurrence: US)
  Receive Date: 20180426
  Receipt Date: 20180426
  Transmission Date: 20180711
  Serious: No
  Sender: FDA-Public Use
  Company Number: PHEH2018US015196

PATIENT
  Age: 14 Year
  Sex: Male
  Weight: 45.9 kg

DRUGS (1)
  1. OMNITROPE [Suspect]
     Active Substance: SOMATROPIN
     Indication: GROWTH RETARDATION
     Dosage: 1.7 MG, QD
     Route: 058
     Dates: start: 20170901

REACTIONS (4)
  - Vomiting [Unknown]
  - Asthma [Unknown]
  - Diarrhoea [Recovered/Resolved]
  - Hyposmia [Unknown]

NARRATIVE: CASE EVENT DATE: 20180219
